FAERS Safety Report 7640986-5 (Version None)
Quarter: 2011Q3

REPORT INFORMATION
  Report Type: 
  Country: None (occurrence: None)
  Receive Date: 20110728
  Receipt Date: 20110714
  Transmission Date: 20111222
  Serious: Yes (Other)
  Sender: FDA-Public Use
  Company Number: US-RANBAXY-2010US-40343

PATIENT
  Age: 29 Year
  Sex: Female

DRUGS (5)
  1. FLUCYTOSINE [Suspect]
     Indication: CRYPTOCOCCUS TEST POSITIVE
     Dosage: UNK
     Route: 065
  2. DIPHENHYDRAMINE HCL [Concomitant]
     Indication: PREMEDICATION
  3. FLUCONAZOLE [Suspect]
     Indication: CRYPTOCOCCUS TEST POSITIVE
     Dosage: 400 MG, UNK
     Route: 048
  4. AMPHOTERICIN B [Suspect]
     Indication: CRYPTOCOCCUS TEST POSITIVE
     Dosage: UNK, UNK
     Route: 065
  5. FAMOTIDINE [Concomitant]
     Indication: PREMEDICATION
     Route: 065

REACTIONS (2)
  - RASH [None]
  - PYREXIA [None]
